FAERS Safety Report 5289057-6 (Version None)
Quarter: 2007Q2

REPORT INFORMATION
  Report Type: 
  Country: None (occurrence: None)
  Receive Date: 20070406
  Receipt Date: 20070327
  Transmission Date: 20071010
  Serious: Yes (Hospitalization, Other)
  Sender: FDA-Public Use
  Company Number: DE-PFIZER INC-2007026243

PATIENT
  Age: 65 Year
  Sex: Male

DRUGS (3)
  1. ATARAX [Suspect]
     Dosage: DAILY DOSE:500MG
     Route: 048
  2. TETRAZEPAM [Suspect]
     Dosage: DAILY DOSE:500MG
     Route: 048
  3. ALCOHOL [Suspect]
     Route: 048

REACTIONS (2)
  - SOMNOLENCE [None]
  - SUICIDE ATTEMPT [None]
